FAERS Safety Report 19148186 (Version 1)
Quarter: 2021Q2

REPORT INFORMATION
  Report Type: Spontaneous
  Country: CA (occurrence: CA)
  Receive Date: 20210416
  Receipt Date: 20210416
  Transmission Date: 20210717
  Serious: Yes (Death)
  Sender: FDA-Public Use
  Company Number: CA-PFIZER INC-2016435699

PATIENT
  Age: 67 Year
  Sex: Male

DRUGS (2)
  1. XELJANZ [Suspect]
     Active Substance: TOFACITINIB CITRATE
     Indication: RHEUMATOID ARTHRITIS
     Dosage: 5 MG, 2X/DAY
     Route: 048
     Dates: start: 20160910
  2. RITUXAN [Concomitant]
     Active Substance: RITUXIMAB
     Dosage: 2000 MG, UNK
     Dates: start: 20151006, end: 20160901

REACTIONS (5)
  - Arthralgia [Unknown]
  - Therapeutic product effect delayed [Recovering/Resolving]
  - Death [Fatal]
  - Diarrhoea [Not Recovered/Not Resolved]
  - Sensitivity to weather change [Unknown]

NARRATIVE: CASE EVENT DATE: 2016
